FAERS Safety Report 4657915-9 (Version None)
Quarter: 2005Q2

REPORT INFORMATION
  Report Type: 
  Country: None (occurrence: None)
  Receive Date: 20050504
  Receipt Date: 20040305
  Transmission Date: 20051028
  Serious: Yes (Hospitalization)
  Sender: FDA-Public Use
  Company Number: 000964

PATIENT
  Age: 43 Year
  Sex: Female
  Weight: 88.4 kg

DRUGS (2)
  1. CENESTIN [Suspect]
     Indication: HOT FLUSH
     Dosage: 1.00 TABLET, QD, ORAL
     Route: 048
     Dates: start: 20040210, end: 20040216
  2. PREVACID [Concomitant]

REACTIONS (5)
  - ANGINA PECTORIS [None]
  - ANXIETY [None]
  - BLOOD PRESSURE DECREASED [None]
  - DYSPNOEA [None]
  - HYPERSENSITIVITY [None]
